FAERS Safety Report 6571292-8 (Version None)
Quarter: 2010Q1

REPORT INFORMATION
  Report Type: 
  Country: None (occurrence: None)
  Receive Date: 20100129
  Receipt Date: 20100122
  Transmission Date: 20100710
  Serious: Yes (Life-Threatening, Other)
  Sender: FDA-Public Use
  Company Number: SPV1-2009-02581

PATIENT
  Age: 61 Year
  Sex: Male

DRUGS (9)
  1. FOSRENOL [Suspect]
     Indication: HYPERPHOSPHATAEMIA
     Dosage: ORAL
     Route: 048
     Dates: start: 20090901
  2. SENNARIDE  (SENNOSIDE A+B) [Suspect]
     Indication: CONSTIPATION
     Dosage: ORAL
     Route: 048
  3. CALCIUM CARBONATE [Concomitant]
  4. MUCOSTA       (REBAMIPIDE) [Concomitant]
  5. GRANDAXIN (TOFISOPAM) [Concomitant]
  6. CRESTOR [Concomitant]
  7. ADALAT CC [Concomitant]
  8. NITRAZEPAM [Concomitant]
  9. CALTAN (CALCIUM CARBONATE) [Concomitant]

REACTIONS (3)
  - ANAEMIA [None]
  - DIVERTICULUM INTESTINAL HAEMORRHAGIC [None]
  - GASTRITIS EROSIVE [None]
